FAERS Safety Report 19093917 (Version 2)
Quarter: 2021Q2

REPORT INFORMATION
  Report Type: Report from Study
  Country: CH (occurrence: CH)
  Receive Date: 20210405
  Receipt Date: 20210604
  Transmission Date: 20210717
  Serious: Yes (Other)
  Sender: FDA-Public Use
  Company Number: CH-TAKEDA-2021TUS020551

PATIENT

DRUGS (52)
  1. NEXIUM [Concomitant]
     Active Substance: ESOMEPRAZOLE MAGNESIUM
     Indication: GASTROINTESTINAL DISORDER
     Dosage: 40 MILLIGRAM, BID
     Route: 065
     Dates: end: 202003
  2. PANTOPRAZOLE [Concomitant]
     Active Substance: PANTOPRAZOLE
     Indication: GASTROINTESTINAL DISORDER
     Dosage: 40 MILLIGRAM, BID
     Dates: start: 20200401
  3. TRAMAL [Concomitant]
     Active Substance: TRAMADOL
     Dosage: 100 MILLIGRAM, BID
     Route: 065
     Dates: start: 20200928
  4. YELLOX [Concomitant]
     Active Substance: BROMFENAC SODIUM
     Indication: EYE OPERATION
     Dosage: 0.9 MG/ML
     Route: 065
     Dates: start: 20200211, end: 20200224
  5. YELLOX [Concomitant]
     Active Substance: BROMFENAC SODIUM
     Dosage: 0.9 MG/ML
     Dates: start: 20200225, end: 20200308
  6. CARVEDILOL. [Concomitant]
     Active Substance: CARVEDILOL
     Indication: HYPERTENSION
     Dosage: 50 MILLIGRAM, QD
     Route: 065
  7. ZOLPIDEM [Concomitant]
     Active Substance: ZOLPIDEM TARTRATE
     Indication: HEADACHE
     Dosage: 10 MILLIGRAM, QD
     Route: 065
  8. PEGYLATED COAGULATION FACTOR VIII [Suspect]
     Active Substance: ANTIHEMOPHILIC FACTOR, PEGYLATED (MW 20000) HUMAN SEQUENCE RECOMBINANT
     Indication: PRODUCT USED FOR UNKNOWN INDICATION
     Dosage: UNKNOWN
     Route: 065
  9. CYKLOKAPRON [Concomitant]
     Active Substance: TRANEXAMIC ACID
     Indication: EPISTAXIS
     Dosage: 5 PERCENT, PRN
     Route: 065
     Dates: start: 20201008
  10. DIAMOX SEQUELS [Concomitant]
     Active Substance: ACETAZOLAMIDE
     Dosage: 250 MILLIGRAM
     Route: 065
     Dates: start: 20200225, end: 20200225
  11. FERINJECT [Concomitant]
     Active Substance: FERRIC CARBOXYMALTOSE
     Dosage: UNK, QD
     Route: 065
     Dates: start: 20200420, end: 20200420
  12. NOVALGIN [CAFFEINE;PARACETAMOL;PROPYPHENAZONE] [Concomitant]
     Active Substance: ACETAMINOPHEN\CAFFEINE\PROPYPHENAZONE
     Indication: PAIN
     Dosage: 1 GRAM, QID
     Route: 065
     Dates: start: 20200316, end: 20200401
  13. AMLODIPINE [Concomitant]
     Active Substance: AMLODIPINE BESYLATE
     Indication: HYPERTENSION
     Dosage: 5 MILLIGRAM, QD
     Route: 065
     Dates: start: 20120314, end: 20150323
  14. PRED FORTE [Concomitant]
     Active Substance: PREDNISOLONE ACETATE
     Dosage: 1 PERCENT, BID
     Route: 065
     Dates: start: 20200303, end: 20200309
  15. PRED FORTE [Concomitant]
     Active Substance: PREDNISOLONE ACETATE
     Dosage: 1 PERCENT, BID
     Route: 065
     Dates: start: 20200312, end: 20200319
  16. CO?AMOXI [Concomitant]
     Active Substance: AMOXICILLIN\CLAVULANATE POTASSIUM
     Indication: ARTHRITIS
     Dosage: 2.2 GRAM, QID
     Dates: start: 20201204, end: 20201208
  17. ACIDUM FOLICUM STREULI [Concomitant]
     Active Substance: FOLIC ACID
     Indication: ANAEMIA
     Dosage: 5 MILLIGRAM, QD
     Route: 065
     Dates: start: 20200401, end: 2020
  18. NOVALGIN [CAFFEINE;PARACETAMOL;PROPYPHENAZONE] [Concomitant]
     Active Substance: ACETAMINOPHEN\CAFFEINE\PROPYPHENAZONE
     Dosage: 500 MILLIGRAM, PRN
     Route: 065
     Dates: start: 20200803, end: 20200928
  19. NOVALGIN [CAFFEINE;PARACETAMOL;PROPYPHENAZONE] [Concomitant]
     Active Substance: ACETAMINOPHEN\CAFFEINE\PROPYPHENAZONE
     Dosage: 500 MILLIGRAM, QID
     Route: 065
     Dates: start: 20201205
  20. PRED FORTE [Concomitant]
     Active Substance: PREDNISOLONE ACETATE
     Dosage: 1 PERCENT, QD
     Route: 065
     Dates: start: 20200310, end: 20200316
  21. VASCORD [VERAPAMIL HYDROCHLORIDE] [Concomitant]
     Indication: HYPERTENSION
     Dosage: 40/10 MG
     Route: 065
     Dates: start: 20191004
  22. VASCORD [VERAPAMIL HYDROCHLORIDE] [Concomitant]
     Dosage: 40/10/25 MG
     Route: 065
     Dates: start: 20190204, end: 20191104
  23. DEPO?MEDROL [Concomitant]
     Active Substance: METHYLPREDNISOLONE ACETATE
     Indication: ARTHROPATHY
     Dosage: UNK
     Route: 065
     Dates: start: 20171025, end: 20171025
  24. FORTECORTIN [DEXAMETHASONE ACETATE] [Concomitant]
     Active Substance: DEXAMETHASONE ACETATE
     Indication: ARTHRITIS
     Dosage: UNK UNK, QD
     Route: 065
     Dates: start: 20201208, end: 20201208
  25. PRED FORTE [Concomitant]
     Active Substance: PREDNISOLONE ACETATE
     Indication: EYE OPERATION
     Dosage: 1 PERCENT, QID
     Route: 065
     Dates: start: 20200218, end: 20200224
  26. PRED FORTE [Concomitant]
     Active Substance: PREDNISOLONE ACETATE
     Dosage: 1 PERCENT, QD
     Route: 065
     Dates: start: 20200320, end: 20200327
  27. CEFUROXIM ABR [Concomitant]
     Indication: INFECTION PROPHYLAXIS
     Dosage: 1.5 GRAM, TID
     Route: 065
     Dates: start: 20200316, end: 20200318
  28. CO?DAFALGAN [Concomitant]
     Active Substance: ACETAMINOPHEN\CODEINE PHOSPHATE
     Indication: HEADACHE
     Dosage: 500/30 MG
     Route: 065
     Dates: start: 20160321
  29. DAFALGAN [Concomitant]
     Active Substance: ACETAMINOPHEN
     Indication: HEADACHE
     Dosage: 1 GRAM, PRN
     Route: 065
     Dates: start: 2014, end: 20160321
  30. DULCOLAX (BISACODYL) [Concomitant]
     Active Substance: BISACODYL
     Indication: CONSTIPATION
     Dosage: UNK UNK, PRN
     Route: 065
     Dates: start: 2013
  31. PRED FORTE [Concomitant]
     Active Substance: PREDNISOLONE ACETATE
     Dosage: 1 PERCENT, QID
     Route: 065
     Dates: start: 20200304, end: 20200311
  32. FERINJECT [Concomitant]
     Active Substance: FERRIC CARBOXYMALTOSE
     Indication: ANAEMIA
     Dosage: UNK, QD
     Route: 065
     Dates: start: 20200406, end: 20200406
  33. LACRI VISION [Concomitant]
     Indication: EYE OPERATION
     Dosage: UNK UNK, PRN
     Route: 065
     Dates: start: 20200211
  34. PRED FORTE [Concomitant]
     Active Substance: PREDNISOLONE ACETATE
     Dosage: 1 PERCENT, TID
     Route: 065
     Dates: start: 20200225, end: 20200302
  35. TARGIN [Concomitant]
     Active Substance: NALOXONE HYDROCHLORIDE\OXYCODONE HYDROCHLORIDE
     Indication: PAIN
     Dosage: 10/5 MG
     Route: 065
     Dates: start: 20190506, end: 201909
  36. CANDESARTAN. [Concomitant]
     Active Substance: CANDESARTAN
     Indication: HYPERTENSION
     Dosage: 16 MILLIGRAM, QD
     Route: 065
     Dates: start: 20200317, end: 20200322
  37. FERINJECT [Concomitant]
     Active Substance: FERRIC CARBOXYMALTOSE
     Dosage: 500 MILLIGRAM/10ML, QD
     Route: 065
     Dates: start: 20200406, end: 20200406
  38. KALIUM [POTASSIUM] [Concomitant]
     Active Substance: POTASSIUM
     Indication: HYPOKALAEMIA
     Dosage: 30 MILLIMOLE, QD
     Route: 065
     Dates: start: 20150814, end: 20150817
  39. CEFAZOLIN [Concomitant]
     Active Substance: CEFAZOLIN
     Indication: INFECTION
     Dosage: 2 GRAM, TID
     Route: 065
     Dates: start: 20150512, end: 20150529
  40. ROPIVACAINE. [Concomitant]
     Active Substance: ROPIVACAINE HYDROCHLORIDE
     Indication: ARTHROPATHY
     Dosage: OTHER
     Route: 065
     Dates: start: 20171025, end: 20171025
  41. CO?AMOXI [Concomitant]
     Active Substance: AMOXICILLIN\CLAVULANATE POTASSIUM
     Indication: INFECTION PROPHYLAXIS
     Dosage: 1 GRAM, TID
     Dates: start: 20200322, end: 20200405
  42. PEGYLATED COAGULATION FACTOR VIII [Suspect]
     Active Substance: ANTIHEMOPHILIC FACTOR, PEGYLATED (MW 20000) HUMAN SEQUENCE RECOMBINANT
     Indication: PRODUCT USED FOR UNKNOWN INDICATION
     Dosage: UNKNOWN
     Route: 065
  43. PEGYLATED COAGULATION FACTOR VIII [Suspect]
     Active Substance: ANTIHEMOPHILIC FACTOR, PEGYLATED (MW 20000) HUMAN SEQUENCE RECOMBINANT
     Indication: PRODUCT USED FOR UNKNOWN INDICATION
     Dosage: UNKNOWN
     Route: 065
  44. DIAMOX SEQUELS [Concomitant]
     Active Substance: ACETAZOLAMIDE
     Indication: EYE OPERATION
     Dosage: 250 MILLIGRAM, BID
     Route: 065
     Dates: start: 20200211, end: 20200211
  45. ENATEC [Concomitant]
     Active Substance: ENALAPRIL MALEATE
     Indication: HYPERTENSION
     Dosage: 25 MILLIGRAM, BID
     Route: 065
     Dates: start: 2011, end: 20150323
  46. FORTECORTIN [DEXAMETHASONE ACETATE] [Concomitant]
     Active Substance: DEXAMETHASONE ACETATE
     Dosage: 4 MILLIGRAM
     Route: 065
     Dates: start: 20201209, end: 20201210
  47. ADVATE [Concomitant]
     Active Substance: ANTIHEMOPHILIC FACTOR, HUMAN RECOMBINANT
     Indication: FACTOR VIII DEFICIENCY
     Dosage: 2000?4000 U, BID
     Route: 065
     Dates: start: 20201204, end: 20201207
  48. MIRTAZAPINUM [Concomitant]
     Active Substance: MIRTAZAPINE
     Indication: HEADACHE
     Dosage: 30 MILLIGRAM, QD
     Route: 065
     Dates: end: 20191104
  49. REMERON [Concomitant]
     Active Substance: MIRTAZAPINE
     Indication: HEADACHE
     Dosage: 7.5 MILLIGRAM, QD
     Route: 065
     Dates: start: 20161130
  50. TOBRADEX [Concomitant]
     Active Substance: DEXAMETHASONE\TOBRAMYCIN
     Indication: EYE OPERATION
     Dosage: UNK UNK, QD
     Route: 065
     Dates: start: 20200211, end: 20200217
  51. TOBRADEX [Concomitant]
     Active Substance: DEXAMETHASONE\TOBRAMYCIN
     Dosage: UNK UNK, QD
     Route: 065
     Dates: start: 20200225, end: 20200304
  52. TRAMAL [Concomitant]
     Active Substance: TRAMADOL
     Indication: PAIN
     Dosage: 100 MG/ML
     Route: 065
     Dates: start: 20200928

REACTIONS (1)
  - Epistaxis [Not Recovered/Not Resolved]

NARRATIVE: CASE EVENT DATE: 20201008
